FAERS Safety Report 5941628-7 (Version None)
Quarter: 2008Q4

REPORT INFORMATION
  Report Type: 
  Country: None (occurrence: None)
  Receive Date: 20081104
  Receipt Date: 20081104
  Transmission Date: 20090506
  Serious: Yes (Hospitalization)
  Sender: FDA-Public Use
  Company Number: None

PATIENT
  Age: 44 Year
  Sex: Female
  Weight: 95.2554 kg

DRUGS (2)
  1. LAMICTAL [Suspect]
  2. VAGAL NERVE STIMULATOR [Concomitant]

REACTIONS (1)
  - ABNORMAL BEHAVIOUR [None]
